FAERS Safety Report 5128034-2 (Version None)
Quarter: 2006Q4

REPORT INFORMATION
  Report Type: 
  Country: None (occurrence: None)
  Receive Date: 20061013
  Receipt Date: 20061013
  Transmission Date: 20070319
  Serious: Yes (Life-Threatening, Hospitalization)
  Sender: FDA-Public Use
  Company Number: None

PATIENT
  Age: 39 Year
  Sex: Female
  Weight: 78.9259 kg

DRUGS (1)
  1. HURRICANE SPRAY [Suspect]
     Indication: OESOPHAGOGASTRODUODENOSCOPY
     Dates: start: 20061011, end: 20061011

REACTIONS (2)
  - OXYGEN SATURATION DECREASED [None]
  - PROCEDURAL COMPLICATION [None]
